FAERS Safety Report 15776470 (Version 1)
Quarter: 2018Q4

REPORT INFORMATION
  Report Type: Spontaneous
  Country: US (occurrence: US)
  Receive Date: 20181228
  Receipt Date: 20181228
  Transmission Date: 20190205
  Serious: Yes (Death)
  Sender: FDA-Public Use
  Company Number: None

PATIENT
  Age: 81 Year
  Sex: Female

DRUGS (1)
  1. PROCARBAZINE HCL [Suspect]
     Active Substance: PROCARBAZINE HYDROCHLORIDE
     Indication: NON-HODGKIN^S LYMPHOMA
     Dosage: ?          OTHER FREQUENCY:QD DAYS 1-7;?
     Route: 048

REACTIONS (1)
  - Death [None]

NARRATIVE: CASE EVENT DATE: 20181208
